FAERS Safety Report 17168588 (Version 2)
Quarter: 2019Q4

REPORT INFORMATION
  Report Type: Report from Study
  Country: IT (occurrence: IT)
  Receive Date: 20191218
  Receipt Date: 20191218
  Transmission Date: 20200122
  Serious: Yes (Hospitalization)
  Sender: FDA-Public Use
  Company Number: IT-ACCORD-165843

PATIENT
  Age: 64 Year
  Sex: Female

DRUGS (9)
  1. DOXAZOSIN [Suspect]
     Active Substance: DOXAZOSIN MESYLATE
     Indication: HYPERTENSION
     Dates: end: 20191015
  2. HYDROCHLOROTHIAZIDE. [Suspect]
     Active Substance: HYDROCHLOROTHIAZIDE
     Indication: HYPERTENSION
     Route: 048
     Dates: end: 20191015
  3. CARDIOASPIRIN [Concomitant]
     Active Substance: ASPIRIN
     Dosage: STRENGTH: 100 MG
     Route: 048
  4. CARBAMAZEPINE TEVA [Concomitant]
     Active Substance: CARBAMAZEPINE
     Route: 048
  5. ATORVASTATIN ALMUS [Concomitant]
     Dosage: STRENGTH: 10 MG FILM-COATED TABLETS
     Route: 048
  6. CLOPIDOGREL [Concomitant]
     Active Substance: CLOPIDOGREL BISULFATE
     Route: 048
  7. NAPRILENE [Suspect]
     Active Substance: ENALAPRIL MALEATE
     Indication: HYPERTENSION
     Route: 048
     Dates: end: 20191015
  8. CYMBALTA [Concomitant]
     Active Substance: DULOXETINE HYDROCHLORIDE
     Dosage: STRENGTH: 60 MG HARD GASTRO-RESISTANT CAPSULES
     Route: 048
  9. BACLOFEN MYLAN GENERICS [Concomitant]
     Dosage: STRENGTH: 25 MG
     Route: 048

REACTIONS (6)
  - Hypokinesia [Recovering/Resolving]
  - Hyperhidrosis [Recovering/Resolving]
  - Vomiting [Recovering/Resolving]
  - Bradyphrenia [Recovering/Resolving]
  - Blood sodium decreased [Recovering/Resolving]
  - Nausea [Recovering/Resolving]

NARRATIVE: CASE EVENT DATE: 20191013
